FAERS Safety Report 7214075-8 (Version None)
Quarter: 2011Q1

REPORT INFORMATION
  Report Type: 
  Country: None (occurrence: None)
  Receive Date: 20110107
  Receipt Date: 20101228
  Transmission Date: 20110831
  Serious: No
  Sender: FDA-Public Use
  Company Number: US-BIOGENIDEC-2011BI000485

PATIENT
  Sex: Female

DRUGS (1)
  1. AVONEX [Suspect]
     Indication: MULTIPLE SCLEROSIS
     Route: 030
     Dates: start: 20091125

REACTIONS (12)
  - PAIN [None]
  - PARAESTHESIA [None]
  - BONE PAIN [None]
  - SENSORY DISTURBANCE [None]
  - MUSCULAR WEAKNESS [None]
  - GAIT DISTURBANCE [None]
  - HYPOTHYROIDISM [None]
  - HYPERAESTHESIA [None]
  - VOMITING [None]
  - MUSCLE SPASMS [None]
  - UNDERWEIGHT [None]
  - NAUSEA [None]
